FAERS Safety Report 9889197 (Version 1)
Quarter: 2014Q1

REPORT INFORMATION
  Report Type: Report from Study
  Country: US (occurrence: US)
  Receive Date: 20140211
  Receipt Date: 20140211
  Transmission Date: 20141002
  Serious: Yes (Death, Hospitalization)
  Sender: FDA-Public Use
  Company Number: US-US-EMD SERONO, INC.-7268582

PATIENT
  Sex: Female

DRUGS (3)
  1. REBIF [Suspect]
     Indication: MULTIPLE SCLEROSIS
     Route: 058
     Dates: start: 20080506, end: 201304
  2. BACLOFEN [Concomitant]
     Indication: MULTIPLE SCLEROSIS
  3. AVONEX                             /05982701/ [Concomitant]
     Indication: MULTIPLE SCLEROSIS

REACTIONS (4)
  - Sepsis [Fatal]
  - Hepatic cirrhosis [Fatal]
  - Gastritis haemorrhagic [Unknown]
  - Ascites [Unknown]
